APPROVED DRUG PRODUCT: BETHANECHOL CHLORIDE
Active Ingredient: BETHANECHOL CHLORIDE
Strength: 50MG
Dosage Form/Route: TABLET;ORAL
Application: A040636 | Product #001 | TE Code: AA
Applicant: UPSHER SMITH LABORATORIES LLC
Approved: Jun 1, 2005 | RLD: No | RS: No | Type: RX